FAERS Safety Report 6491660-2 (Version None)
Quarter: 2009Q4

REPORT INFORMATION
  Report Type: 
  Country: None (occurrence: None)
  Receive Date: 20091211
  Receipt Date: 20091203
  Transmission Date: 20100525
  Serious: Yes (Life-Threatening, Disabling, Other)
  Sender: FDA-Public Use
  Company Number: JP-MERCK-0911USA01675

PATIENT
  Age: 96 Year
  Sex: Female
  Weight: 38 kg

DRUGS (1)
  1. STROMECTOL [Suspect]
     Indication: ACARODERMATITIS
     Route: 048
     Dates: start: 20090803, end: 20090803

REACTIONS (1)
  - LIVER DISORDER [None]
